FAERS Safety Report 24205071 (Version 2)
Quarter: 2024Q4

REPORT INFORMATION
  Report Type: Spontaneous
  Country: FR (occurrence: FR)
  Receive Date: 20240813
  Receipt Date: 20241004
  Transmission Date: 20250114
  Serious: Yes (Hospitalization, Congenital Anomaly, Other)
  Sender: SANOFI AVENTIS
  Company Number: None

PATIENT
  Age: 24 Year
  Sex: Female
  Weight: 72 kg

DRUGS (4)
  1. DUPIXENT [Interacting]
     Active Substance: DUPILUMAB
     Indication: Dermatitis atopic
     Dosage: 1 DF, Q15D
     Route: 058
     Dates: start: 20240216, end: 20240514
  2. VALACYCLOVIR HYDROCHLORIDE [Interacting]
     Active Substance: VALACYCLOVIR HYDROCHLORIDE
     Indication: Eczema herpeticum
     Dosage: 1 G, QD
     Route: 048
     Dates: start: 202402, end: 20240216
  3. DESOGESTREL [Interacting]
     Active Substance: DESOGESTREL
     Indication: Contraception
     Dosage: 1 DF, QD
     Route: 048
     Dates: start: 2022, end: 202405
  4. MISOPROSTOL [Suspect]
     Active Substance: MISOPROSTOL
     Dosage: UNK
     Dates: end: 2024

REACTIONS (10)
  - Unwanted pregnancy [Recovered/Resolved with Sequelae]
  - Exposure during pregnancy [Unknown]
  - Drug ineffective [Unknown]
  - Benign hydatidiform mole [Recovered/Resolved]
  - Device related infection [Unknown]
  - Abortion spontaneous [Recovered/Resolved]
  - Eczema herpeticum [Unknown]
  - Erythrodermic atopic dermatitis [Unknown]
  - Renal colic [Unknown]
  - Lithiasis [Unknown]

NARRATIVE: CASE EVENT DATE: 20231101
